FAERS Safety Report 13519548 (Version 1)
Quarter: 2017Q2

REPORT INFORMATION
  Report Type: Spontaneous
  Country: ZA (occurrence: ZA)
  Receive Date: 20170505
  Receipt Date: 20170505
  Transmission Date: 20170830
  Serious: Yes (Death, Other)
  Sender: FDA-Public Use
  Company Number: ZA-009507513-1705ZAF002275

PATIENT
  Age: 48 Year
  Sex: Female

DRUGS (2)
  1. ESMERON [Suspect]
     Active Substance: ROCURONIUM BROMIDE
  2. PROPOFOL. [Suspect]
     Active Substance: PROPOFOL

REACTIONS (2)
  - Circulatory collapse [Fatal]
  - Bronchospasm [Fatal]
